FAERS Safety Report 8619503-9 (Version None)
Quarter: 2012Q3

REPORT INFORMATION
  Report Type: 
  Country: None (occurrence: None)
  Receive Date: 20120824
  Receipt Date: 20120328
  Transmission Date: 20120928
  Serious: No
  Sender: FDA-Public Use
  Company Number: US-ASTRAZENECA-2012SE21014

PATIENT
  Age: 69 Year
  Sex: Female
  Weight: 57.2 kg

DRUGS (2)
  1. SYMBICORT [Suspect]
     Dosage: TOTAL DAILY DOSAGE 160/4.5MCG 2 PUFFS TWICE DAILY
     Route: 055
  2. MAXI AIR [Concomitant]

REACTIONS (2)
  - CHRONIC OBSTRUCTIVE PULMONARY DISEASE [None]
  - RHEUMATOID ARTHRITIS [None]
